FAERS Safety Report 4732025-0 (Version None)
Quarter: 2005Q3

REPORT INFORMATION
  Report Type: 
  Country: None (occurrence: None)
  Receive Date: 20050802
  Receipt Date: 20050712
  Transmission Date: 20060218
  Serious: Yes (Hospitalization)
  Sender: FDA-Public Use
  Company Number: CA-ABBOTT-05P-028-0306355-00

PATIENT
  Age: 55 Year
  Sex: Female

DRUGS (3)
  1. CLARITHROMYCIN [Suspect]
     Indication: HELICOBACTER INFECTION
  2. LANSOPRAZOLE [Concomitant]
     Indication: HELICOBACTER INFECTION
     Route: 048
  3. AMOXICILLIN [Concomitant]
     Indication: HELICOBACTER INFECTION
     Route: 048

REACTIONS (6)
  - AGITATION [None]
  - DELUSION OF GRANDEUR [None]
  - DISTURBANCE IN ATTENTION [None]
  - HALLUCINATION, AUDITORY [None]
  - INSOMNIA [None]
  - LOGORRHOEA [None]
